FAERS Safety Report 5294892-4 (Version None)
Quarter: 2007Q2

REPORT INFORMATION
  Report Type: 
  Country: None (occurrence: None)
  Receive Date: 20070412
  Receipt Date: 20070330
  Transmission Date: 20071010
  Serious: Yes (Other)
  Sender: FDA-Public Use
  Company Number: US-ELI_LILLY_AND_COMPANY-US200612004201

PATIENT
  Age: 39 Year
  Sex: Male
  Weight: 80.272 kg

DRUGS (3)
  1. CYMBALTA [Suspect]
     Indication: TRIGEMINAL NEURALGIA
     Dosage: 60 MG, UNK
     Dates: start: 20061017, end: 20061220
  2. NEURONTIN [Concomitant]
     Indication: TRIGEMINAL NEURALGIA
     Dosage: 300 MG, UNK
     Dates: start: 20050101
  3. DIOVAN [Concomitant]
     Indication: HYPERTENSION
     Dosage: 160 MG, UNK
     Dates: start: 20050101

REACTIONS (2)
  - CONVULSION [None]
  - FALL [None]
